FAERS Safety Report 13020953 (Version 1)
Quarter: 2016Q4

REPORT INFORMATION
  Report Type: Report from Study
  Country: CA (occurrence: CA)
  Receive Date: 20161212
  Receipt Date: 20161212
  Transmission Date: 20170207
  Serious: Yes (Hospitalization, Other)
  Sender: FDA-Public Use
  Company Number: CA-AMGEN-CANSL2016160888

PATIENT
  Age: 71 Year
  Sex: Male
  Weight: 76.19 kg

DRUGS (12)
  1. COVERSYL [Concomitant]
     Active Substance: PERINDOPRIL
  2. ORENCIA [Concomitant]
     Active Substance: ABATACEPT
     Dosage: 125 MG, QWK
     Dates: start: 20160128
  3. PREDNISONE. [Concomitant]
     Active Substance: PREDNISONE
     Dosage: 3 MG, QD
     Route: 048
  4. ASA [Concomitant]
     Active Substance: ASPIRIN
     Dosage: 81 MG, UNK
  5. AMLODIPINE [Concomitant]
     Active Substance: AMLODIPINE BESYLATE
  6. PROLIA [Suspect]
     Active Substance: DENOSUMAB
     Indication: PRODUCT USED FOR UNKNOWN INDICATION
     Dosage: UNK
     Route: 065
  7. CELEBREX [Concomitant]
     Active Substance: CELECOXIB
     Dosage: 200 MG, BID
     Route: 048
  8. TYLENOL [Concomitant]
     Active Substance: ACETAMINOPHEN
     Dosage: UNK UNK, AS NECESSARY
  9. VITAMIN D [Concomitant]
     Active Substance: CHOLECALCIFEROL
     Dosage: 2000 IU, QD
     Route: 048
  10. LEFLUNOMIDE. [Concomitant]
     Active Substance: LEFLUNOMIDE
     Dosage: 20 MG, QD
     Route: 048
  11. ROSUVASTATIN. [Concomitant]
     Active Substance: ROSUVASTATIN
  12. BISOPROLOL [Concomitant]
     Active Substance: BISOPROLOL

REACTIONS (21)
  - Compression fracture [Unknown]
  - Occult blood positive [Unknown]
  - Trigeminal neuralgia [Unknown]
  - Hypercalcaemia [Unknown]
  - Neck pain [Unknown]
  - Back pain [Unknown]
  - Road traffic accident [Unknown]
  - Hepatic cyst [Unknown]
  - Oral pain [Recovering/Resolving]
  - Device dislocation [Unknown]
  - Weight decreased [Not Recovered/Not Resolved]
  - Rotator cuff syndrome [Unknown]
  - Osteoarthritis [Unknown]
  - Angioplasty [Unknown]
  - Rheumatoid arthritis [Unknown]
  - Hyperthyroidism [Unknown]
  - Hip surgery [Unknown]
  - Gait disturbance [Not Recovered/Not Resolved]
  - Thyroid mass [Unknown]
  - Hyperparathyroidism [Unknown]
  - Large intestine polyp [Unknown]

NARRATIVE: CASE EVENT DATE: 2015
